FAERS Safety Report 4986083-9 (Version None)
Quarter: 2006Q2

REPORT INFORMATION
  Report Type: 
  Country: None (occurrence: None)
  Receive Date: 20060428
  Receipt Date: 20060420
  Transmission Date: 20061013
  Serious: Yes (Hospitalization, Other)
  Sender: FDA-Public Use
  Company Number: US-JNJFOC-20060404869

PATIENT
  Sex: Female

DRUGS (6)
  1. TYLENOL (CAPLET) [Suspect]
  2. TYLENOL (CAPLET) [Suspect]
     Indication: HEADACHE
  3. SUDAFED 12 HOUR [Suspect]
  4. SUDAFED 12 HOUR [Suspect]
     Dosage: 1-2 CAPLETS, DAILY
  5. METFORMIN [Suspect]
     Indication: POLYCYSTIC OVARIES
  6. ROBITUSSIN [Suspect]
     Indication: RESPIRATORY TRACT CONGESTION

REACTIONS (4)
  - DRUG EXPOSURE DURING PREGNANCY [None]
  - NEPHROLITHIASIS [None]
  - PRE-ECLAMPSIA [None]
  - PREMATURE LABOUR [None]
